FAERS Safety Report 21177884 (Version 1)
Quarter: 2022Q3

REPORT INFORMATION
  Report Type: Spontaneous
  Country: US (occurrence: US)
  Receive Date: 20220805
  Receipt Date: 20220805
  Transmission Date: 20221026
  Serious: No
  Sender: FDA-Public Use
  Company Number: US-PFIZER INC-202201035636

PATIENT
  Age: 74 Year
  Sex: Female
  Weight: 54.88 kg

DRUGS (1)
  1. METHOTREXATE SODIUM [Suspect]
     Active Substance: METHOTREXATE SODIUM
     Indication: Rheumatoid arthritis
     Dosage: 0.06 MG, WEEKLY, (ONCE A WEEK)

REACTIONS (3)
  - Off label use [Unknown]
  - Chills [Unknown]
  - COVID-19 [Unknown]
